FAERS Safety Report 7563060-5 (Version None)
Quarter: 2011Q2

REPORT INFORMATION
  Report Type: 
  Country: None (occurrence: None)
  Receive Date: 20110622
  Receipt Date: 20110602
  Transmission Date: 20111010
  Serious: No
  Sender: FDA-Public Use
  Company Number: US-B.I. PHARMACEUTICALS,INC./RIDGEFIELD-2011-BP-14521BP

PATIENT
  Sex: Female

DRUGS (3)
  1. CLONIDINE [Suspect]
  2. PROCARDIA [Concomitant]
  3. HYDROCHLOROTHIAZIDE [Concomitant]

REACTIONS (3)
  - FATIGUE [None]
  - ACTIVITIES OF DAILY LIVING IMPAIRED [None]
  - DRUG INEFFECTIVE [None]
